FAERS Safety Report 6055861-X (Version None)
Quarter: 2009Q1

REPORT INFORMATION
  Report Type: 
  Country: None (occurrence: None)
  Receive Date: 20090126
  Receipt Date: 20090115
  Transmission Date: 20090719
  Serious: Yes (Life-Threatening, Hospitalization)
  Sender: FDA-Public Use
  Company Number: 2008-04776

PATIENT
  Age: 58 Year
  Sex: Female
  Weight: 84 kg

DRUGS (2)
  1. VELCADE [Suspect]
     Indication: MULTIPLE MYELOMA
     Dosage: 2.5 MG UNK SUBCUTANEOUS
     Route: 058
     Dates: start: 20081023, end: 20081215
  2. TRIMETAZIDINE (TRIMETAZIDINE) [Concomitant]

REACTIONS (7)
  - DIZZINESS [None]
  - DYSPNOEA [None]
  - HAEMORRHAGIC DIATHESIS [None]
  - INTESTINAL HAEMORRHAGE [None]
  - INTESTINAL OBSTRUCTION [None]
  - LEUKOPENIA [None]
  - SINUS BRADYCARDIA [None]
